FAERS Safety Report 19526191 (Version 1)
Quarter: 2021Q3

REPORT INFORMATION
  Report Type: Spontaneous
  Country: US (occurrence: US)
  Receive Date: 20210713
  Receipt Date: 20210713
  Transmission Date: 20211014
  Serious: No
  Sender: FDA-Public Use
  Company Number: US-INSUD PHARMA-2106US00741

PATIENT

DRUGS (2)
  1. CLOBETASOL CREAM [Suspect]
     Active Substance: CLOBETASOL
     Indication: PRURITUS
     Dosage: UNKNOWN
     Route: 061
  2. CLOBETASOL CREAM [Suspect]
     Active Substance: CLOBETASOL
     Indication: DERMATITIS CONTACT

REACTIONS (3)
  - Poor quality product administered [Unknown]
  - Drug ineffective [Unknown]
  - Product physical consistency issue [Unknown]
